FAERS Safety Report 19384062 (Version 6)
Quarter: 2021Q3

REPORT INFORMATION
  Report Type: Spontaneous
  Country: PL (occurrence: PL)
  Receive Date: 20210608
  Receipt Date: 20210909
  Transmission Date: 20211014
  Serious: Yes (Hospitalization, Other)
  Sender: FDA-Public Use
  Company Number: PL-AUROBINDO-AUR-APL-2021-023005

PATIENT
  Age: 65 Year
  Sex: Male

DRUGS (44)
  1. ATORVASTATIN [Suspect]
     Active Substance: ATORVASTATIN
     Dosage: 20 MILLIGRAM
     Route: 065
  2. CARVEDILOL FILM?COATED TABLETS [Suspect]
     Active Substance: CARVEDILOL
     Dosage: 12.5 MILLIGRAM, TWO TIMES A DAY
     Route: 065
  3. CARVEDILOL FILM?COATED TABLETS [Suspect]
     Active Substance: CARVEDILOL
     Dosage: 25 MILLIGRAM, ONCE A DAY
     Route: 065
  4. ACETYLSALICYLIC ACID [Suspect]
     Active Substance: ASPIRIN
     Dosage: 75 MILLIGRAM
     Route: 065
     Dates: start: 20191115
  5. APIXABAN [Suspect]
     Active Substance: APIXABAN
     Dosage: 2.5 MILLIGRAM, TWO TIMES A DAY
     Route: 065
     Dates: start: 202103
  6. SACUBITRIL;VALSARTAN [Suspect]
     Active Substance: SACUBITRIL\VALSARTAN
     Dosage: UNK UNK, ONCE A DAY (24/26 MG, BID)
     Route: 065
     Dates: start: 202103
  7. TORASEMIDE [Suspect]
     Active Substance: TORSEMIDE
     Dosage: 10 MILLIGRAM
     Route: 065
     Dates: start: 202103
  8. CARVEDILOL FILM?COATED TABLETS [Suspect]
     Active Substance: CARVEDILOL
     Dosage: 37.5 MILLIGRAM, ONCE A DAY (12.5 MG, TID)
     Route: 065
     Dates: start: 202103
  9. CARVEDILOL FILM?COATED TABLETS [Suspect]
     Active Substance: CARVEDILOL
     Dosage: 25 MILLIGRAM, ONCE A DAY
     Route: 065
     Dates: start: 202103
  10. CLOPIDOGREL FILM COATED TABLETS [Suspect]
     Active Substance: CLOPIDOGREL BISULFATE
     Indication: PRODUCT USED FOR UNKNOWN INDICATION
     Dosage: 75 MILLIGRAM
     Route: 048
     Dates: start: 20190811
  11. EPLERENONE. [Suspect]
     Active Substance: EPLERENONE
     Dosage: 5 MILLIGRAM
     Route: 065
     Dates: start: 20190811
  12. METFORMIN [Suspect]
     Active Substance: METFORMIN HYDROCHLORIDE
     Dosage: 500 MILLIGRAM, 3 TIMES A DAY
     Route: 065
     Dates: start: 202103
  13. SACUBITRIL;VALSARTAN [Suspect]
     Active Substance: SACUBITRIL\VALSARTAN
     Indication: PRODUCT USED FOR UNKNOWN INDICATION
     Dosage: UNK UNK, ONCE A DAY (24/26 MG, BID)
     Route: 065
     Dates: start: 20191017
  14. DAPAGLIFLOZIN. [Concomitant]
     Active Substance: DAPAGLIFLOZIN
     Indication: PRODUCT USED FOR UNKNOWN INDICATION
     Dosage: 10 MILLIGRAM
     Route: 065
     Dates: start: 202103
  15. CARVEDILOL FILM?COATED TABLETS [Suspect]
     Active Substance: CARVEDILOL
     Dosage: 12.5 MG?0?6.25 MG
     Route: 065
  16. APIXABAN [Suspect]
     Active Substance: APIXABAN
     Indication: CEREBROVASCULAR ACCIDENT PROPHYLAXIS
     Dosage: 2.5 MILLIGRAM, TWO TIMES A DAY
     Route: 065
     Dates: start: 20191115
  17. ATORVASTATIN [Suspect]
     Active Substance: ATORVASTATIN
     Indication: PRODUCT USED FOR UNKNOWN INDICATION
     Dosage: 20 MILLIGRAM
     Route: 065
  18. ATORVASTATIN [Suspect]
     Active Substance: ATORVASTATIN
     Dosage: 40 MILLIGRAM
     Route: 065
     Dates: start: 202103
  19. ACETYLSALICYLIC ACID [Suspect]
     Active Substance: ASPIRIN
     Indication: PRODUCT USED FOR UNKNOWN INDICATION
     Dosage: 75 MILLIGRAM
     Route: 065
     Dates: start: 20190811
  20. ACETYLSALICYLIC ACID [Suspect]
     Active Substance: ASPIRIN
     Dosage: 75 MILLIGRAM
     Route: 065
     Dates: start: 20191015
  21. EPLERENONE. [Suspect]
     Active Substance: EPLERENONE
     Dosage: 50 MILLIGRAM
     Route: 065
     Dates: start: 202103
  22. ATORVASTATIN [Suspect]
     Active Substance: ATORVASTATIN
     Dosage: 40 MILLIGRAM
     Route: 065
     Dates: start: 20190811
  23. CARVEDILOL FILM?COATED TABLETS [Suspect]
     Active Substance: CARVEDILOL
     Indication: PRODUCT USED FOR UNKNOWN INDICATION
     Dosage: UNK UNK, ONCE A DAY, BID, (12.5 MG?0?6.25 MG)
     Route: 065
  24. CARVEDILOL FILM?COATED TABLETS [Suspect]
     Active Substance: CARVEDILOL
     Dosage: 25 MILLIGRAM, ONCE A DAY
     Route: 065
  25. EPLERENONE. [Suspect]
     Active Substance: EPLERENONE
     Dosage: 25 MILLIGRAM
     Route: 065
     Dates: start: 20190811
  26. EPLERENONE. [Suspect]
     Active Substance: EPLERENONE
     Dosage: 10 MILLIGRAM
     Route: 065
     Dates: start: 202103
  27. TORASEMIDE [Suspect]
     Active Substance: TORSEMIDE
     Dosage: 5 MILLIGRAM
     Route: 065
     Dates: start: 20190811
  28. BISOPROLOL [Suspect]
     Active Substance: BISOPROLOL
     Indication: PRODUCT USED FOR UNKNOWN INDICATION
     Dosage: 2.5 MILLIGRAM
     Route: 065
     Dates: start: 20190811
  29. FUROSEMIDE. [Suspect]
     Active Substance: FUROSEMIDE
     Dosage: 40 MILLIGRAM
     Route: 065
     Dates: start: 20190811
  30. EPLERENONE. [Suspect]
     Active Substance: EPLERENONE
     Dosage: 50 MILLIGRAM
     Route: 065
  31. METFORMIN [Suspect]
     Active Substance: METFORMIN HYDROCHLORIDE
     Dosage: 500 MILLIGRAM, TID
     Route: 065
     Dates: start: 20190811
  32. FUROSEMIDE. [Suspect]
     Active Substance: FUROSEMIDE
     Dosage: 80 MILLIGRAM, ONCE A DAY (20 MG, BID)
     Route: 065
     Dates: start: 20191017
  33. FUROSEMIDE. [Suspect]
     Active Substance: FUROSEMIDE
     Dosage: 40 MILLIGRAM, ONCE A DAY
     Route: 065
     Dates: start: 202010
  34. EPLERENONE. [Suspect]
     Active Substance: EPLERENONE
     Indication: PRODUCT USED FOR UNKNOWN INDICATION
     Dosage: 50 MILLIGRAM
     Route: 065
  35. METFORMIN [Suspect]
     Active Substance: METFORMIN HYDROCHLORIDE
     Indication: PRODUCT USED FOR UNKNOWN INDICATION
     Dosage: 500 MILLIGRAM, 3 TIMES A DAY
     Route: 065
     Dates: start: 20190811
  36. IPP (PANTOPRAZOLE SODIUM SESQUIHYDRATE) [Suspect]
     Active Substance: PANTOPRAZOLE SODIUM
     Indication: PRODUCT USED FOR UNKNOWN INDICATION
     Dosage: UNK
     Route: 065
     Dates: start: 20190811
  37. TORASEMIDE [Suspect]
     Active Substance: TORSEMIDE
     Dosage: 10 MILLIGRAM
     Route: 065
  38. FUROSEMIDE. [Suspect]
     Active Substance: FUROSEMIDE
     Indication: PRODUCT USED FOR UNKNOWN INDICATION
     Dosage: 40 MILLIGRAM, TWO TIMES A DAY
     Route: 065
  39. FUROSEMIDE. [Suspect]
     Active Substance: FUROSEMIDE
     Dosage: 40 MILLIGRAM, ONCE A DAY (20 MG, BID)
     Route: 065
     Dates: start: 20191017
  40. FUROSEMIDE. [Suspect]
     Active Substance: FUROSEMIDE
     Dosage: 40 MILLIGRAM
     Route: 065
     Dates: start: 202103
  41. PANTOPRAZOLE [Suspect]
     Active Substance: PANTOPRAZOLE
     Indication: PRODUCT USED FOR UNKNOWN INDICATION
     Dosage: UNK
     Route: 065
     Dates: start: 20190811
  42. RAMIPRIL. [Suspect]
     Active Substance: RAMIPRIL
     Indication: PRODUCT USED FOR UNKNOWN INDICATION
     Dosage: 2.5 MILLIGRAM
     Route: 065
     Dates: start: 20190811
  43. APIXABAN [Suspect]
     Active Substance: APIXABAN
     Dosage: 2.5 MILLIGRAM, TWO TIMES A DAY
     Route: 065
     Dates: start: 202010
  44. TORASEMIDE [Suspect]
     Active Substance: TORSEMIDE
     Indication: PRODUCT USED FOR UNKNOWN INDICATION
     Dosage: 10 MILLIGRAM
     Route: 065

REACTIONS (13)
  - Heart rate decreased [Unknown]
  - Glomerular filtration rate decreased [Unknown]
  - Mitral valve calcification [Unknown]
  - Mitral valve thickening [Unknown]
  - Concomitant disease aggravated [Unknown]
  - Haemoglobin decreased [Unknown]
  - N-terminal prohormone brain natriuretic peptide increased [Unknown]
  - Platelet count decreased [Unknown]
  - Blood pressure decreased [Unknown]
  - Ejection fraction decreased [Unknown]
  - Pulmonary oedema [Unknown]
  - Mitral valve incompetence [Unknown]
  - Glycosylated haemoglobin increased [Unknown]

NARRATIVE: CASE EVENT DATE: 201911
